FAERS Safety Report 4885332-5 (Version None)
Quarter: 2006Q1

REPORT INFORMATION
  Report Type: 
  Country: None (occurrence: None)
  Receive Date: 20060119
  Receipt Date: 20060106
  Transmission Date: 20060701
  Serious: Yes (Hospitalization)
  Sender: FDA-Public Use
  Company Number: 2006UW00336

PATIENT
  Age: 90 Year
  Sex: Female

DRUGS (7)
  1. SEROQUEL [Suspect]
     Indication: ANXIETY
     Dosage: LOWER DOSE
     Route: 048
     Dates: start: 20050201
  2. SEROQUEL [Suspect]
     Indication: DEPRESSION
     Dosage: LOWER DOSE
     Route: 048
     Dates: start: 20050201
  3. SEROQUEL [Suspect]
     Route: 048
  4. SEROQUEL [Suspect]
     Route: 048
  5. TEGRETOL [Concomitant]
  6. REMERON [Concomitant]
  7. PROZAC [Concomitant]
     Dates: end: 20050101

REACTIONS (4)
  - CHOKING [None]
  - RETCHING [None]
  - SCRATCH [None]
  - SCREAMING [None]
